FAERS Safety Report 24741267 (Version 1)
Quarter: 2024Q4

REPORT INFORMATION
  Report Type: Spontaneous
  Country: CA (occurrence: CA)
  Receive Date: 20241217
  Receipt Date: 20241217
  Transmission Date: 20250115
  Serious: Yes (Other)
  Sender: CELLTRION
  Company Number: CA-PFIZER INC-202400201744

PATIENT

DRUGS (6)
  1. INFLECTRA [Suspect]
     Active Substance: INFLIXIMAB-DYYB
     Indication: Crohn^s disease
     Dosage: 5 MG/KG, X 2 DOSES, RECEIVED IN HOSPITAL (UNKNOWN IF INFLECTRA OR REMICADE)
     Route: 042
     Dates: start: 20240611, end: 20240617
  2. INFLECTRA [Suspect]
     Active Substance: INFLIXIMAB-DYYB
     Dosage: 700 MG, W 2, 6 AND Q (EVERY) 8 WEEKS
     Route: 042
     Dates: start: 202407, end: 2024
  3. INFLECTRA [Suspect]
     Active Substance: INFLIXIMAB-DYYB
     Dosage: 10 MG/KG, RECEIVED IN HOSPITAL (UNKNOWN IF INFLECTRA OR REMICADE)
     Route: 042
     Dates: start: 20240725, end: 20240725
  4. INFLECTRA [Suspect]
     Active Substance: INFLIXIMAB-DYYB
     Dosage: 10 MG/KG, EVERY 4 WEEKS
     Route: 042
     Dates: start: 20240823
  5. INFLECTRA [Suspect]
     Active Substance: INFLIXIMAB-DYYB
     Dosage: 10 MG/KG, EVERY 4 WEEKS
     Route: 042
     Dates: start: 20240926
  6. INFLECTRA [Suspect]
     Active Substance: INFLIXIMAB-DYYB
     Dosage: 10 MG/KG, EVERY 4 WEEKS
     Route: 042
     Dates: start: 20241121

REACTIONS (11)
  - Rectal haemorrhage [Unknown]
  - Condition aggravated [Recovering/Resolving]
  - Oedema peripheral [Recovering/Resolving]
  - Herpes zoster [Unknown]
  - Visual impairment [Unknown]
  - Constipation [Not Recovered/Not Resolved]
  - Haemorrhoids [Unknown]
  - Anaemia [Unknown]
  - Diarrhoea infectious [Unknown]
  - Off label use [Unknown]
  - Off label use [Unknown]

NARRATIVE: CASE EVENT DATE: 20240101
